FAERS Safety Report 8550514-8 (Version None)
Quarter: 2012Q3

REPORT INFORMATION
  Report Type: 
  Country: None (occurrence: None)
  Receive Date: 20120719
  Receipt Date: 20120709
  Transmission Date: 20120928
  Serious: Yes (Other)
  Sender: FDA-Public Use
  Company Number: AUR-APL-2012-03039

PATIENT
  Age: 59 Year
  Sex: Female

DRUGS (2)
  1. GEMFIBROZIL [Suspect]
     Indication: HYPERCHOLESTEROLAEMIA
     Dosage: 800 MG, DAILY, ORAL
     Route: 048
     Dates: start: 20120305, end: 20120408
  2. RAMIPRIL [Suspect]
     Indication: HYPERTENSION
     Dosage: 5 MG, DAILY, ORAL
     Route: 048
     Dates: start: 20110617, end: 20120412

REACTIONS (3)
  - ANGIOEDEMA [None]
  - MUSCULOSKELETAL STIFFNESS [None]
  - MYOSITIS [None]
